FAERS Safety Report 14389641 (Version 1)
Quarter: 2018Q1

REPORT INFORMATION
  Report Type: Spontaneous
  Country: US (occurrence: US)
  Receive Date: 20180115
  Receipt Date: 20180115
  Transmission Date: 20180509
  Serious: Yes (Other)
  Sender: FDA-Public Use
  Company Number: US-SANOFI-AVENTIS-2011SA022757

PATIENT
  Age: 46 Year
  Sex: Female

DRUGS (4)
  1. TAXOTERE [Suspect]
     Active Substance: DOCETAXEL
     Indication: BREAST CANCER
     Route: 041
     Dates: start: 201010, end: 201010
  2. TAXOTERE [Suspect]
     Active Substance: DOCETAXEL
     Indication: BREAST CANCER
     Route: 041
     Dates: start: 2010, end: 2010
  3. TAXOTERE [Suspect]
     Active Substance: DOCETAXEL
     Indication: BREAST CANCER
     Route: 041
     Dates: start: 2010, end: 2010
  4. TAXOTERE [Suspect]
     Active Substance: DOCETAXEL
     Indication: BREAST CANCER
     Route: 041
     Dates: start: 20101227, end: 20101227

REACTIONS (12)
  - Alopecia [Unknown]
  - Arthralgia [Not Recovered/Not Resolved]
  - Anxiety [Unknown]
  - Impaired quality of life [Unknown]
  - Pain [Unknown]
  - Arthralgia [Not Recovered/Not Resolved]
  - Emotional distress [Unknown]
  - Vertigo [Unknown]
  - Nail disorder [Not Recovered/Not Resolved]
  - Neuropathy peripheral [Unknown]
  - Injury [Unknown]
  - Dacryostenosis acquired [Recovered/Resolved]

NARRATIVE: CASE EVENT DATE: 2010
